FAERS Safety Report 5657512-2 (Version None)
Quarter: 2008Q1

REPORT INFORMATION
  Report Type: 
  Country: None (occurrence: None)
  Receive Date: 20080310
  Receipt Date: 20080227
  Transmission Date: 20080703
  Serious: Yes (Other)
  Sender: FDA-Public Use
  Company Number: US-PFIZER INC-2008019521

PATIENT
  Sex: Male
  Weight: 86.363 kg

DRUGS (3)
  1. CHANTIX [Interacting]
     Indication: SMOKING CESSATION THERAPY
     Dates: start: 20070901, end: 20080120
  2. ALCOHOL [Suspect]
  3. ATENOLOL [Concomitant]

REACTIONS (4)
  - DRUG INTERACTION [None]
  - ILL-DEFINED DISORDER [None]
  - MEMORY IMPAIRMENT [None]
  - ROAD TRAFFIC ACCIDENT [None]
